FAERS Safety Report 4647475-0 (Version None)
Quarter: 2005Q2

REPORT INFORMATION
  Report Type: 
  Country: None (occurrence: None)
  Receive Date: 20050426
  Receipt Date: 20050412
  Transmission Date: 20051028
  Serious: Yes (Death)
  Sender: FDA-Public Use
  Company Number: 2005BI007553

PATIENT
  Age: 54 Year
  Sex: Female

DRUGS (1)
  1. AVONEX [Suspect]
     Indication: MULTIPLE SCLEROSIS
     Dosage: IM
     Route: 030
     Dates: start: 19990101, end: 20041030

REACTIONS (5)
  - ABASIA [None]
  - CARDIAC DISORDER [None]
  - DYSSTASIA [None]
  - HEMIPLEGIA [None]
  - MULTIPLE SCLEROSIS [None]
